FAERS Safety Report 10269496 (Version 1)
Quarter: 2014Q3

REPORT INFORMATION
  Report Type: Spontaneous
  Country: US (occurrence: US)
  Receive Date: 20140701
  Receipt Date: 20140701
  Transmission Date: 20150326
  Serious: No
  Sender: FDA-Public Use
  Company Number: US-BIOGENIDEC-2014BI062625

PATIENT
  Sex: Female

DRUGS (1)
  1. AVONEX [Suspect]
     Active Substance: INTERFERON BETA-1A
     Indication: MULTIPLE SCLEROSIS
     Route: 030
     Dates: start: 20010619, end: 20090618

REACTIONS (9)
  - General physical health deterioration [Not Recovered/Not Resolved]
  - Musculoskeletal stiffness [Unknown]
  - Gait disturbance [Unknown]
  - Visual impairment [Unknown]
  - Arthritis [Unknown]
  - Coordination abnormal [Unknown]
  - Vomiting [Unknown]
  - Migraine [Recovered/Resolved with Sequelae]
  - Incontinence [Unknown]

NARRATIVE: CASE EVENT DATE: 2014
